FAERS Safety Report 8376245-5 (Version None)
Quarter: 2012Q2

REPORT INFORMATION
  Report Type: 
  Country: None (occurrence: None)
  Receive Date: 20120522
  Receipt Date: 20120509
  Transmission Date: 20120825
  Serious: Yes (Hospitalization)
  Sender: FDA-Public Use
  Company Number: SE-ASTRAZENECA-2012SE30422

PATIENT
  Age: 45 Year
  Sex: Female

DRUGS (3)
  1. XYLOCAINE [Suspect]
     Route: 065
  2. SUFENTANIL CITRATE [Concomitant]
  3. CLONIDINE [Concomitant]

REACTIONS (1)
  - DRUG EFFECT PROLONGED [None]
